FAERS Safety Report 10252638 (Version 1)
Quarter: 2014Q2

REPORT INFORMATION
  Report Type: Spontaneous
  Country: CA (occurrence: CA)
  Receive Date: 20140623
  Receipt Date: 20140623
  Transmission Date: 20141212
  Serious: Yes (Other)
  Sender: FDA-Public Use
  Company Number: CA-BAYER-2014-092465

PATIENT
  Sex: Female

DRUGS (1)
  1. ALEVE [Suspect]

REACTIONS (1)
  - Dialysis [None]
